FAERS Safety Report 7345368-1 (Version None)
Quarter: 2011Q1

REPORT INFORMATION
  Report Type: 
  Country: None (occurrence: None)
  Receive Date: 20110310
  Receipt Date: 20110302
  Transmission Date: 20110831
  Serious: Yes (Hospitalization)
  Sender: FDA-Public Use
  Company Number: PHHO2011FR03995

PATIENT
  Sex: Male

DRUGS (3)
  1. NEORAL [Suspect]
     Indication: RENAL TRANSPLANT
     Dosage: 125 MG, BID
     Route: 048
     Dates: start: 20100418
  2. MYCOPHENOLIC ACID [Suspect]
     Indication: RENAL TRANSPLANT
     Dosage: 720 MG, BID
     Route: 048
     Dates: start: 20100419
  3. CORTANCYL [Concomitant]
     Indication: RENAL TRANSPLANT

REACTIONS (5)
  - BLOOD CREATININE INCREASED [None]
  - KIDNEY ANASTOMOSIS [None]
  - PYELONEPHRITIS ACUTE [None]
  - SERRATIA INFECTION [None]
  - URETERIC ANASTOMOSIS COMPLICATION [None]
